FAERS Safety Report 6522426-2 (Version None)
Quarter: 2009Q4

REPORT INFORMATION
  Report Type: 
  Country: None (occurrence: None)
  Receive Date: 20091230
  Receipt Date: 20091217
  Transmission Date: 20100525
  Serious: Yes (Other)
  Sender: FDA-Public Use
  Company Number: US-JNJFOC-20091205790

PATIENT
  Age: 80 Year
  Sex: Female
  Weight: 61.24 kg

DRUGS (4)
  1. ST. JOSEPH ENTERIC COATED [Suspect]
     Indication: PROPHYLAXIS
     Route: 048
  2. MAALOX [Concomitant]
     Indication: ABDOMINAL DISCOMFORT
  3. CALTRATE [Concomitant]
     Indication: MEDICAL DIET
  4. VITAMIN [Concomitant]
     Indication: MEDICAL DIET

REACTIONS (3)
  - ABDOMINAL PAIN UPPER [None]
  - BONE PAIN [None]
  - PRODUCT TAMPERING [None]
